FAERS Safety Report 7758439-2 (Version None)
Quarter: 2011Q3

REPORT INFORMATION
  Report Type: 
  Country: None (occurrence: None)
  Receive Date: 20110919
  Receipt Date: 20110912
  Transmission Date: 20111222
  Serious: No
  Sender: FDA-Public Use
  Company Number: US-PFIZER INC-2011215647

PATIENT
  Sex: Male

DRUGS (3)
  1. NEURONTIN [Suspect]
     Dosage: UNK
  2. GABAPENTIN [Suspect]
     Indication: BACK DISORDER
     Dosage: 300 MG, 3X/DAY
  3. GABAPENTIN [Suspect]
     Dosage: 600 MG, 3X/DAY

REACTIONS (4)
  - SWELLING [None]
  - OEDEMA PERIPHERAL [None]
  - PARAESTHESIA [None]
  - BURNING SENSATION [None]
